FAERS Safety Report 8567361-3 (Version None)
Quarter: 2012Q3

REPORT INFORMATION
  Report Type: 
  Country: None (occurrence: None)
  Receive Date: 20120803
  Receipt Date: 20120730
  Transmission Date: 20120928
  Serious: Yes (Hospitalization, Disabling)
  Sender: FDA-Public Use
  Company Number: PHHY2012CN060461

PATIENT
  Age: 39 Year
  Sex: Male

DRUGS (1)
  1. SEBIVO [Suspect]
     Indication: HEPATITIS B
     Dosage: 600 MG, QD
     Route: 048
     Dates: start: 20120601, end: 20120712

REACTIONS (5)
  - COMA HEPATIC [None]
  - BLOOD LACTIC ACID INCREASED [None]
  - MUSCLE INJURY [None]
  - MYOGLOBIN BLOOD INCREASED [None]
  - BLOOD CREATINE PHOSPHOKINASE INCREASED [None]
